FAERS Safety Report 9495275 (Version 1)
Quarter: 2013Q3

REPORT INFORMATION
  Report Type: Spontaneous
  Country: FR (occurrence: FR)
  Receive Date: 20130903
  Receipt Date: 20130903
  Transmission Date: 20140515
  Serious: Yes (Death)
  Sender: FDA-Public Use
  Company Number: FR-SANOFI-AVENTIS-2013SA087022

PATIENT
  Age: 91 Year
  Sex: Female

DRUGS (8)
  1. LOVENOX [Suspect]
     Indication: PROPHYLAXIS
     Route: 058
     Dates: start: 20130115, end: 20130129
  2. DOLIPRANE [Suspect]
     Indication: PAIN
     Route: 048
     Dates: start: 20130121, end: 20130129
  3. FLAGYL [Suspect]
     Indication: VAGINAL DISCHARGE
     Route: 067
     Dates: start: 20130118, end: 20130127
  4. AMOXICILLIN [Suspect]
     Indication: INFECTION
     Route: 042
     Dates: start: 20130122, end: 20130129
  5. MOVICOL [Suspect]
     Indication: CONSTIPATION
     Route: 048
     Dates: start: 20130120, end: 20130129
  6. AMLOR [Suspect]
     Indication: HYPERTENSION
     Route: 048
     Dates: start: 20130120, end: 20130125
  7. AMLOR [Suspect]
     Indication: HYPERTENSION
     Route: 048
     Dates: start: 20130126, end: 20130129
  8. CEFTRIAXONE [Concomitant]
     Dates: start: 20130114, end: 20130121

REACTIONS (4)
  - Tubulointerstitial nephritis [Fatal]
  - Blood creatinine increased [Fatal]
  - Hyperkalaemia [Fatal]
  - Creatinine renal clearance decreased [Fatal]
